FAERS Safety Report 14238696 (Version 2)
Quarter: 2018Q1

REPORT INFORMATION
  Report Type: Spontaneous
  Country: JP (occurrence: JP)
  Receive Date: 20171130
  Receipt Date: 20180112
  Transmission Date: 20180508
  Serious: Yes (Hospitalization)
  Sender: FDA-Public Use
  Company Number: JP-EISAI MEDICAL RESEARCH-EC-2017-031982

PATIENT
  Age: 49 Year
  Sex: Female
  Weight: 42 kg

DRUGS (4)
  1. LENVIMA [Suspect]
     Active Substance: LENVATINIB
     Indication: THYROID CANCER
     Route: 048
     Dates: start: 20151015, end: 20151123
  2. LEVOTHYROXINE SODIUM HYDRATE [Concomitant]
     Active Substance: LEVOTHYROXINE SODIUM
     Indication: THYROID DISORDER
     Dosage: UNKNOWN
     Route: 065
  3. LENVIMA [Suspect]
     Active Substance: LENVATINIB
     Route: 048
     Dates: start: 20151124, end: 20160201
  4. LENVIMA [Suspect]
     Active Substance: LENVATINIB
     Route: 048
     Dates: start: 20160202, end: 20170320

REACTIONS (6)
  - Nephrotic syndrome [Recovering/Resolving]
  - Oedema [Unknown]
  - Haemorrhage [Unknown]
  - Blood pressure increased [Unknown]
  - Hypogeusia [Unknown]
  - Proteinuria [Unknown]

NARRATIVE: CASE EVENT DATE: 20161220
